FAERS Safety Report 7776340-5 (Version None)
Quarter: 2011Q3

REPORT INFORMATION
  Report Type: 
  Country: None (occurrence: None)
  Receive Date: 20110926
  Receipt Date: 20110915
  Transmission Date: 20111222
  Serious: Yes (Hospitalization)
  Sender: FDA-Public Use
  Company Number: US-JNJFOC-20110701759

PATIENT
  Sex: Male
  Weight: 122.5 kg

DRUGS (27)
  1. LIPITOR [Concomitant]
     Indication: BLOOD CHOLESTEROL
     Route: 048
     Dates: start: 20050101, end: 20100901
  2. MORPHINE SULFATE [Concomitant]
     Indication: BACK PAIN
     Dosage: PCA
     Dates: start: 20110426, end: 20110427
  3. DEXTROSE 5% [Concomitant]
     Indication: DIARRHOEA
     Dates: start: 20110426, end: 20110426
  4. LASIX [Concomitant]
     Indication: FLUID RETENTION
     Dates: start: 20090817
  5. HUMALOG [Concomitant]
     Indication: DIABETES MELLITUS
     Dates: start: 20100424
  6. ACETAMINOPHEN [Concomitant]
     Indication: PAIN
     Dates: start: 20100924
  7. LOMOTIL [Concomitant]
     Indication: DIARRHOEA
     Dates: start: 20101104, end: 20110524
  8. ZOMETA [Concomitant]
     Indication: OSTEOPOROSIS PROPHYLAXIS
     Dates: start: 20050318
  9. ABIRATERONE ACETATE [Suspect]
     Route: 048
     Dates: start: 20110315
  10. PREDNISONE [Suspect]
     Indication: PROSTATE CANCER METASTATIC
     Route: 065
     Dates: start: 20110315, end: 20110619
  11. SIMVASTATIN [Suspect]
     Indication: PRODUCT USED FOR UNKNOWN INDICATION
     Route: 065
  12. LIPITOR [Concomitant]
     Route: 048
     Dates: start: 20100902
  13. IMODIUM [Concomitant]
     Indication: DIARRHOEA
     Dates: start: 20090324
  14. KLONOPIN [Concomitant]
     Indication: ANXIETY
     Dates: start: 20090817
  15. NYSTATIN [Concomitant]
     Indication: RASH
     Dates: start: 20100706
  16. COMPAZINE [Concomitant]
     Indication: NAUSEA
     Dates: start: 20100924
  17. DEXAMETHASONE [Concomitant]
     Indication: BACK PAIN
     Dates: start: 20110426, end: 20110426
  18. SODIUM CHLORIDE [Concomitant]
     Indication: DIARRHOEA
     Dates: start: 20110426, end: 20110427
  19. ECONAZOLE NITRATE [Concomitant]
     Indication: RASH
     Dates: start: 20100706
  20. ABIRATERONE ACETATE [Suspect]
     Indication: PROSTATE CANCER METASTATIC
     Route: 048
     Dates: start: 20110607, end: 20110619
  21. BENADRYL [Concomitant]
     Indication: INSOMNIA
     Dates: start: 20090201
  22. LANTUS [Concomitant]
     Indication: DIABETES MELLITUS
     Dates: start: 20100424
  23. ENOXAPARIN [Concomitant]
     Indication: OEDEMA PERIPHERAL
     Dates: start: 20110426, end: 20110427
  24. HYDROCODONE [Concomitant]
     Indication: PAIN
     Dates: start: 20100924
  25. SINEQUAN [Concomitant]
     Indication: DEPRESSION
     Dates: start: 20101013
  26. PROTONIX [Concomitant]
     Indication: DIARRHOEA
     Dates: start: 20110426, end: 20110427
  27. LASIX [Concomitant]
     Indication: OEDEMA PERIPHERAL
     Dates: start: 20110426, end: 20110427

REACTIONS (1)
  - RHABDOMYOLYSIS [None]
